FAERS Safety Report 25742759 (Version 2)
Quarter: 2025Q4

REPORT INFORMATION
  Report Type: Report from Study
  Country: GB (occurrence: GB)
  Receive Date: 20250830
  Receipt Date: 20251202
  Transmission Date: 20260117
  Serious: Yes (Other)
  Sender: TEVA
  Company Number: GB-TEVA-VS-3366720

PATIENT
  Age: 44 Year
  Sex: Female

DRUGS (1)
  1. COPAXONE [Suspect]
     Active Substance: GLATIRAMER ACETATE
     Indication: Multiple sclerosis
     Dosage: TIME INTERVAL: 0.33333333 WEEKS
     Route: 058
     Dates: start: 20220101

REACTIONS (7)
  - Depression [Unknown]
  - Product dose omission in error [Unknown]
  - Anger [Unknown]
  - Pain [Unknown]
  - Mobility decreased [Unknown]
  - Memory impairment [Unknown]
  - Fatigue [Unknown]
